FAERS Safety Report 18202168 (Version 4)
Quarter: 2021Q2

REPORT INFORMATION
  Report Type: Spontaneous
  Country: US (occurrence: US)
  Receive Date: 20200827
  Receipt Date: 20210625
  Transmission Date: 20210717
  Serious: No
  Sender: FDA-Public Use
  Company Number: US-PFIZER INC-2020330787

PATIENT
  Age: 48 Year
  Sex: Female

DRUGS (2)
  1. LYRICA [Suspect]
     Active Substance: PREGABALIN
     Indication: IMMUNE SYSTEM DISORDER
     Dosage: UNK
  2. LYRICA [Suspect]
     Active Substance: PREGABALIN
     Indication: FIBROMYALGIA

REACTIONS (12)
  - Pharyngeal disorder [Unknown]
  - Poor quality product administered [Unknown]
  - Malaise [Unknown]
  - Feeling abnormal [Unknown]
  - Pyrexia [Unknown]
  - Migraine [Unknown]
  - Hypersomnia [Unknown]
  - Poor quality sleep [Unknown]
  - Abdominal discomfort [Unknown]
  - Asthenia [Unknown]
  - Pain [Unknown]
  - Product storage error [Unknown]
